FAERS Safety Report 7167447-4 (Version None)
Quarter: 2010Q4

REPORT INFORMATION
  Report Type: 
  Country: None (occurrence: None)
  Receive Date: 20101216
  Receipt Date: 20091225
  Transmission Date: 20110411
  Serious: No
  Sender: FDA-Public Use
  Company Number: A0837297A

PATIENT
  Age: 59 Year
  Sex: Male

DRUGS (7)
  1. NICOTINE POLACRILEX [Suspect]
  2. NICOTINE POLACRILEX [Suspect]
  3. NICOTINE POLACRILEX [Suspect]
  4. NICOTINE POLACRILEX [Suspect]
  5. NICOTINE POLACRILEX [Suspect]
  6. COMMIT [Suspect]
  7. NICORETTE [Suspect]

REACTIONS (4)
  - DRUG ADMINISTRATION ERROR [None]
  - GASTROOESOPHAGEAL REFLUX DISEASE [None]
  - ORAL DISCOMFORT [None]
  - RESPIRATORY TRACT IRRITATION [None]
